FAERS Safety Report 11650542 (Version 1)
Quarter: 2015Q4

REPORT INFORMATION
  Report Type: Report from Study
  Country: US (occurrence: US)
  Receive Date: 20151021
  Receipt Date: 20151021
  Transmission Date: 20160304
  Serious: Yes (Life-Threatening, Hospitalization, Other)
  Sender: FDA-Public Use
  Company Number: US-BRISTOL-MYERS SQUIBB COMPANY-20097424

PATIENT
  Age: 52 Year
  Sex: Male
  Weight: 85.6 kg

DRUGS (3)
  1. TEMOZOLOMIDE. [Concomitant]
     Active Substance: TEMOZOLOMIDE
     Indication: GLIOBLASTOMA MULTIFORME
     Dosage: 7395 MG, UNK
     Route: 065
     Dates: start: 20121113
  2. BLINDED PLACEBO [Suspect]
     Active Substance: INVESTIGATIONAL PRODUCT
     Indication: GLIOBLASTOMA MULTIFORME
     Dosage: 7650 MG, UNK
     Route: 065
     Dates: start: 20121113
  3. BLINDED DASATINIB [Suspect]
     Active Substance: DASATINIB
     Indication: GLIOBLASTOMA MULTIFORME
     Dosage: 7650 MG, UNK
     Route: 065
     Dates: start: 20121113

REACTIONS (5)
  - Fall [Unknown]
  - Respiratory failure [Recovering/Resolving]
  - Mental status changes [Unknown]
  - Headache [Recovered/Resolved]
  - Pneumonia influenzal [Recovered/Resolved]

NARRATIVE: CASE EVENT DATE: 20140104
